FAERS Safety Report 9036921 (Version 2)
Quarter: 2013Q1

REPORT INFORMATION
  Report Type: Spontaneous
  Country: SG (occurrence: None)
  Receive Date: 20121206
  Receipt Date: 20130123
  Transmission Date: 20140127
  Serious: No
  Sender: FDA-Public Use
  Company Number: AESGP201200146

PATIENT
  Age: 9 Month
  Sex: Female

DRUGS (2)
  1. HYPERHEP B [Suspect]
     Indication: ANTIVIRAL PROPHYLAXIS
     Route: 030
     Dates: start: 20100909
  2. ENGERIX B (NO PREF. NAME) [Suspect]
     Indication: HEPATITIS B IMMUNISATION
     Route: 030
     Dates: start: 20100909

REACTIONS (2)
  - Drug ineffective [None]
  - Hepatitis B virus test positive [None]
